FAERS Safety Report 7335052-2 (Version None)
Quarter: 2011Q1

REPORT INFORMATION
  Report Type: 
  Country: None (occurrence: None)
  Receive Date: 20110307
  Receipt Date: 20110301
  Transmission Date: 20110831
  Serious: Yes (Hospitalization)
  Sender: FDA-Public Use
  Company Number: JP-ROCHE-763267

PATIENT
  Sex: Female

DRUGS (4)
  1. BLOPRESS [Concomitant]
     Dosage: PERORAL AGENT
     Route: 048
  2. ACTEMRA [Suspect]
     Indication: RHEUMATOID ARTHRITIS
     Route: 041
     Dates: start: 20100427, end: 20110125
  3. PREDNISOLONE [Concomitant]
     Dosage: PERORAL AGENT, DOSAGE IS UNCERTAIN
     Route: 048
  4. GASTER [Concomitant]
     Dosage: PERORAL AGENT, DOSAGE IS UNCERTAIN
     Route: 048

REACTIONS (1)
  - SUBARACHNOID HAEMORRHAGE [None]
